FAERS Safety Report 8272485-4 (Version None)
Quarter: 2012Q2

REPORT INFORMATION
  Report Type: 
  Country: None (occurrence: None)
  Receive Date: 20120410
  Receipt Date: 20120327
  Transmission Date: 20120825
  Serious: Yes (Death)
  Sender: FDA-Public Use
  Company Number: GB-BAUSCH-2012BL002252

PATIENT
  Age: 63 Year
  Sex: Male

DRUGS (1)
  1. DEXAMETHASONE [Suspect]
     Indication: PANCREATIC CARCINOMA
     Route: 048
     Dates: start: 20110824, end: 20110831

REACTIONS (6)
  - ESCHERICHIA INFECTION [None]
  - PULMONARY EMBOLISM [None]
  - PANCREATIC CARCINOMA STAGE IV [None]
  - ESCHERICHIA SEPSIS [None]
  - ABDOMINAL INFECTION [None]
  - DISEASE PROGRESSION [None]
